FAERS Safety Report 8405116 (Version 3)
Quarter: 2012Q4

REPORT INFORMATION
  Report Type: Report from Study
  Country: FR (occurrence: FR)
  Receive Date: 20120214
  Receipt Date: 20121011
  Transmission Date: 20130627
  Serious: Yes (Other)
  Sender: FDA-Public Use
  Company Number: FR-GLAXOSMITHKLINE-A0950563A

PATIENT
  Age: 68 Year
  Sex: Male

DRUGS (1)
  1. ELTROMBOPAG [Suspect]
     Dosage: 25MG Per day
     Route: 048
     Dates: end: 20090403

REACTIONS (2)
  - Cataract [Recovered/Resolved]
  - Maculopathy [Not Recovered/Not Resolved]
